FAERS Safety Report 7744536-4 (Version None)
Quarter: 2011Q3

REPORT INFORMATION
  Report Type: 
  Country: None (occurrence: None)
  Receive Date: 20110912
  Receipt Date: 20110906
  Transmission Date: 20111222
  Serious: Yes (Hospitalization)
  Sender: FDA-Public Use
  Company Number: JP-ABBOTT-11P-087-0841827-00

PATIENT
  Sex: Female
  Weight: 31 kg

DRUGS (7)
  1. BIO-THREE [Concomitant]
     Indication: PROPHYLAXIS AGAINST DIARRHOEA
     Route: 048
     Dates: start: 20110708, end: 20110715
  2. MUCODYNE [Concomitant]
     Indication: PRODUCT USED FOR UNKNOWN INDICATION
     Route: 048
     Dates: start: 20110708, end: 20110715
  3. ACETAMINOPHEN [Suspect]
     Indication: PYREXIA
     Dosage: 200 MG TID, PRN
     Route: 048
     Dates: start: 20110707, end: 20110709
  4. ZITHROMAX [Concomitant]
     Indication: PNEUMONIA MYCOPLASMAL
     Route: 048
     Dates: start: 20110708, end: 20110709
  5. UNASYN [Suspect]
     Indication: PNEUMONIA MYCOPLASMAL
     Dates: start: 20110707, end: 20110709
  6. CLARITHROMYCIN [Suspect]
     Indication: PNEUMONIA MYCOPLASMAL
     Route: 048
     Dates: start: 20110709, end: 20110710
  7. MOTILIUM [Concomitant]
     Indication: NAUSEA
     Dosage: 30MG, DAILY, AS NEEDED, PR
     Route: 054
     Dates: start: 20110707, end: 20110709

REACTIONS (2)
  - ERYTHEMA MULTIFORME [None]
  - HEPATIC FUNCTION ABNORMAL [None]
